FAERS Safety Report 25840594 (Version 3)
Quarter: 2025Q4

REPORT INFORMATION
  Report Type: Spontaneous
  Country: US (occurrence: US)
  Receive Date: 20250924
  Receipt Date: 20251113
  Transmission Date: 20260117
  Serious: No
  Sender: TAKEDA
  Company Number: US-TAKEDA-2025TUS082819

PATIENT
  Age: 32 Year
  Sex: Female

DRUGS (7)
  1. ENTYVIO [Suspect]
     Active Substance: VEDOLIZUMAB
     Indication: Crohn^s disease
     Dosage: 300 MILLIGRAM
  2. ENTYVIO [Suspect]
     Active Substance: VEDOLIZUMAB
     Indication: Crohn^s disease
     Dosage: 108 MILLIGRAM, Q2WEEKS
  3. ENTYVIO [Suspect]
     Active Substance: VEDOLIZUMAB
  4. Ortho-cyclen-21 [Concomitant]
     Dosage: 0.2 UNK
  5. IMITREX [Concomitant]
     Active Substance: SUMATRIPTAN SUCCINATE
     Indication: Migraine
     Dosage: 100 MILLIGRAM
  6. ALBUTEROL [Concomitant]
     Active Substance: ALBUTEROL
     Dosage: 6.7 GRAM, Q4HR
     Dates: start: 20240721
  7. DESONIDE [Concomitant]
     Active Substance: DESONIDE
     Dosage: UNK UNK, BID
     Route: 061
     Dates: start: 20240411

REACTIONS (1)
  - Night sweats [Not Recovered/Not Resolved]
